FAERS Safety Report 8827174 (Version 3)
Quarter: 2012Q4

REPORT INFORMATION
  Report Type: 
  Country: US (occurrence: US)
  Receive Date: 20121005
  Receipt Date: 20121023
  Transmission Date: 20130627
  Serious: No
  Sender: FDA-Public Use
  Company Number: US-VERTEX PHARMACEUTICAL INC.-2012-021843

PATIENT
  Age: 49 Year
  Sex: Female
  Weight: 127 kg

DRUGS (11)
  1. VX-950 [Suspect]
     Indication: HEPATITIS C
     Dosage: 750 mg, tid
     Route: 048
  2. PEGASYS [Concomitant]
     Indication: HEPATITIS C
     Dosage: 180 ?g, UNK
     Route: 058
  3. RIBAVIRIN [Concomitant]
     Indication: HEPATITIS C
     Dosage: 200 UNK, UNK
     Route: 048
  4. DETROL LA [Concomitant]
     Dosage: 2 mg, UNK
     Route: 048
  5. MELOXICAM [Concomitant]
     Dosage: 7.5 mg, UNK
     Route: 048
  6. HYDROCHLOROTH [Concomitant]
     Dosage: 12.5 mg, UNK
     Route: 048
  7. VITA D [Concomitant]
     Dosage: 1000 UNK, UNK
     Route: 048
  8. VALACYCLOVIR HCL PHARMA PAC [Concomitant]
     Dosage: 500 mg, UNK
  9. SYMBICORT FORTE [Concomitant]
     Dosage: 80-4.5
  10. IBUPROFEN [Concomitant]
     Dosage: 600 mg, UNK
  11. VALTREX [Concomitant]
     Dosage: 500 mg, UNK
     Route: 048

REACTIONS (12)
  - Cognitive disorder [Unknown]
  - Depressed mood [Unknown]
  - Mood altered [Unknown]
  - Insomnia [Unknown]
  - Influenza like illness [Unknown]
  - Myalgia [Unknown]
  - Fatigue [Unknown]
  - Rash generalised [Unknown]
  - Haemorrhoids [Unknown]
  - Anorectal discomfort [Unknown]
  - Pruritus [Unknown]
  - Anal pruritus [Unknown]
